FAERS Safety Report 25111000 (Version 1)
Quarter: 2025Q1

REPORT INFORMATION
  Report Type: Spontaneous
  Country: US (occurrence: US)
  Receive Date: 20250324
  Receipt Date: 20250324
  Transmission Date: 20250409
  Serious: Yes (Other)
  Sender: UNICHEM
  Company Number: US-UNICHEM LABORATORIES LIMITED-UNI-2025-US-001578

PATIENT

DRUGS (2)
  1. TOPIRAMATE [Suspect]
     Active Substance: TOPIRAMATE
     Indication: Visual impairment
     Route: 048
  2. PHENTERMINE [Concomitant]
     Active Substance: PHENTERMINE
     Indication: Visual impairment
     Route: 048

REACTIONS (1)
  - Choroidal effusion [Recovering/Resolving]
